FAERS Safety Report 8333641-X (Version None)
Quarter: 2012Q2

REPORT INFORMATION
  Report Type: 
  Country: None (occurrence: None)
  Receive Date: 20120503
  Receipt Date: 20120425
  Transmission Date: 20120825
  Serious: Yes (Other)
  Sender: FDA-Public Use
  Company Number: US-BAYER-2012-041541

PATIENT
  Sex: Female

DRUGS (1)
  1. NAPROXEN SODIUM [Suspect]
     Dosage: UNK
     Route: 048

REACTIONS (3)
  - MEMORY IMPAIRMENT [None]
  - FATIGUE [None]
  - SOMNOLENCE [None]
